FAERS Safety Report 24076756 (Version 1)
Quarter: 2024Q3

REPORT INFORMATION
  Report Type: Spontaneous
  Country: US (occurrence: US)
  Receive Date: 20240711
  Receipt Date: 20240711
  Transmission Date: 20241017
  Serious: Yes (Hospitalization, Other)
  Sender: BRISTOL MYERS SQUIBB
  Company Number: US-BRISTOL-MYERS SQUIBB COMPANY-2024-107221

PATIENT
  Age: 71 Year
  Sex: Female
  Weight: 87.23 kg

DRUGS (14)
  1. REVLIMID [Suspect]
     Active Substance: LENALIDOMIDE
     Indication: Plasma cell myeloma
     Route: 048
     Dates: start: 2022, end: 20220826
  2. REVLIMID [Suspect]
     Active Substance: LENALIDOMIDE
     Route: 048
     Dates: start: 202301
  3. REVLIMID [Suspect]
     Active Substance: LENALIDOMIDE
     Route: 048
     Dates: start: 20230127
  4. MAGNESIUM [Concomitant]
     Active Substance: MAGNESIUM
     Indication: Syncope
  5. GABAPENTIN [Concomitant]
     Active Substance: GABAPENTIN
     Route: 048
  6. ATORVASTATIN [Concomitant]
     Active Substance: ATORVASTATIN
     Route: 048
  7. LANTUS [Concomitant]
     Active Substance: INSULIN GLARGINE
     Dosage: (INSULIN GLARGINE SUBCUTANEOUS 100 UNIT/ML) UNIT/ML 10 UNIT/ML SUBCUTANEOUSLY DAILY INCREASE 2 UNITS
  8. ACETAMINOPHEN [Concomitant]
     Active Substance: ACETAMINOPHEN
     Route: 048
  9. ERGOCALCIFEROL [Concomitant]
     Active Substance: ERGOCALCIFEROL
     Route: 048
  10. VITAMIN D NOS [Concomitant]
     Active Substance: CHOLECALCIFEROL\ERGOCALCIFEROL
     Dosage: 50,000 UNITS WEEKLY X8
  11. ACYCLOVIR [Concomitant]
     Active Substance: ACYCLOVIR
     Route: 048
  12. AFLURIA NOS [Concomitant]
     Active Substance: INFLUENZA VIRUS VACCINE TRIVALENT TYPE A+B AFLURIA
     Dosage: (INFLUENZA VIRUS VACCINE (PF) IM TRI-SPLIT (5 YR AND OLDER) 45 MCG(15 MCGX3)/0.5 ML SYRINGE 0.5 ML
     Route: 030
  13. OMEPRAZOLE [Concomitant]
     Active Substance: OMEPRAZOLE
     Dosage: ORAL DELAYED RELEASE
     Route: 048
  14. MELPHALAN [Concomitant]
     Active Substance: MELPHALAN
     Dates: start: 20221005

REACTIONS (4)
  - Electrolyte imbalance [Recovered/Resolved]
  - Cardiac disorder [Recovered/Resolved]
  - Pneumonia [Recovered/Resolved]
  - Diarrhoea [Unknown]

NARRATIVE: CASE EVENT DATE: 20230901
